FAERS Safety Report 13006230 (Version 1)
Quarter: 2016Q4

REPORT INFORMATION
  Report Type: Spontaneous
  Country: US (occurrence: US)
  Receive Date: 20161206
  Receipt Date: 20161206
  Transmission Date: 20170207
  Serious: No
  Sender: FDA-Public Use
  Company Number: None

PATIENT

DRUGS (1)
  1. HEPARIN 5000 UNITS/0.5ML CARPUJECT SYSTEM [Suspect]
     Active Substance: HEPARIN SODIUM
     Dosage: 5000 UNITS/0.5 ML

REACTIONS (3)
  - Device difficult to use [None]
  - Product packaging issue [None]
  - Product label issue [None]
